FAERS Safety Report 17576770 (Version 3)
Quarter: 2020Q3

REPORT INFORMATION
  Report Type: Other
  Country: US (occurrence: US)
  Receive Date: 20200324
  Receipt Date: 20200921
  Transmission Date: 20201102
  Serious: No
  Sender: FDA-Public Use
  Company Number: US-ACORDA-ACO_164234_2020

PATIENT
  Age: 63 Year
  Sex: Male

DRUGS (2)
  1. INBRIJA [Suspect]
     Active Substance: LEVODOPA
     Indication: ON AND OFF PHENOMENON
     Dosage: 42 MILLIGRAM, PRN
     Dates: start: 202002
  2. INBRIJA [Suspect]
     Active Substance: LEVODOPA
     Indication: PARKINSON^S DISEASE
     Dosage: 84MG, (2 CAPSULES OF 42MG), AS NEEDED

REACTIONS (12)
  - Muscle rigidity [Unknown]
  - Fall [Unknown]
  - Condition aggravated [Unknown]
  - Device difficult to use [Unknown]
  - Arthralgia [Unknown]
  - Parkinson^s disease [Unknown]
  - Muscle fatigue [Unknown]
  - Pain in extremity [Unknown]
  - Tremor [Unknown]
  - Fatigue [Unknown]
  - Cough [Unknown]
  - Limb discomfort [Unknown]

NARRATIVE: CASE EVENT DATE: 20200601
